FAERS Safety Report 6300407-1 (Version None)
Quarter: 2009Q3

REPORT INFORMATION
  Report Type: 
  Country: None (occurrence: None)
  Receive Date: 20090806
  Receipt Date: 20080827
  Transmission Date: 20100115
  Serious: No
  Sender: FDA-Public Use
  Company Number: US-ABBOTT-08P-163-0472911-00

PATIENT
  Sex: Female
  Weight: 81.72 kg

DRUGS (4)
  1. DEPAKOTE ER [Suspect]
     Indication: EPILEPSY
     Route: 048
     Dates: start: 20060101
  2. LORATADINE [Concomitant]
     Indication: HYPERSENSITIVITY
     Route: 048
  3. LORATADINE [Concomitant]
  4. MULTI-VITAMIN [Concomitant]
     Indication: VITAMIN SUPPLEMENTATION
     Route: 048

REACTIONS (2)
  - FOOD POISONING [None]
  - MEDICATION RESIDUE [None]
